FAERS Safety Report 21642698 (Version 1)
Quarter: 2022Q4

REPORT INFORMATION
  Report Type: Spontaneous
  Country: FR (occurrence: None)
  Receive Date: 20221125
  Receipt Date: 20221125
  Transmission Date: 20230112
  Serious: Yes (Hospitalization, Disabling)
  Sender: FDA-Public Use
  Company Number: 2022A385681

PATIENT
  Age: 27352 Day
  Sex: Female

DRUGS (1)
  1. SYMBICORT [Suspect]
     Active Substance: BUDESONIDE\FORMOTEROL FUMARATE DIHYDRATE
     Dosage: 160/4.5 UG PER DOSE
     Route: 055
     Dates: start: 2007

REACTIONS (5)
  - Gait disturbance [Unknown]
  - Condition aggravated [Unknown]
  - Dyspnoea [Unknown]
  - Fatigue [Unknown]
  - Product packaging issue [Unknown]

NARRATIVE: CASE EVENT DATE: 20221104
